FAERS Safety Report 20776708 (Version 1)
Quarter: 2022Q2

REPORT INFORMATION
  Report Type: Report from Study
  Country: FR (occurrence: None)
  Receive Date: 20220502
  Receipt Date: 20220502
  Transmission Date: 20220721
  Serious: Yes (Death)
  Sender: FDA-Public Use
  Company Number: 2022A169596

PATIENT
  Age: 72 Year
  Sex: Male

DRUGS (1)
  1. DURVALUMAB [Suspect]
     Active Substance: DURVALUMAB
     Indication: Non-small cell lung cancer stage III
     Dosage: 10 MG/KG AS INTRAVENOUS INFUSION OVER 60 MIN EVERY 2 WEEKS
     Route: 042

REACTIONS (2)
  - Aspergillus infection [Fatal]
  - Haemoptysis [Fatal]
